FAERS Safety Report 13710720 (Version 1)
Quarter: 2017Q3

REPORT INFORMATION
  Report Type: Spontaneous
  Country: US (occurrence: US)
  Receive Date: 20170703
  Receipt Date: 20170703
  Transmission Date: 20171127
  Serious: No
  Sender: FDA-Public Use
  Company Number: US-GLAXOSMITHKLINE-US2017101295

PATIENT
  Sex: Female

DRUGS (1)
  1. ADVAIR DISKUS [Suspect]
     Active Substance: FLUTICASONE PROPIONATE\SALMETEROL XINAFOATE
     Indication: EOSINOPHILIC OESOPHAGITIS
     Dosage: 1 PUFF(S), BID

REACTIONS (3)
  - Product use in unapproved indication [Unknown]
  - Drug administration error [Unknown]
  - Wrong technique in product usage process [Unknown]
